FAERS Safety Report 20965511 (Version 2)
Quarter: 2022Q2

REPORT INFORMATION
  Report Type: Other
  Country: US (occurrence: None)
  Receive Date: 20220616
  Receipt Date: 20220623
  Transmission Date: 20220721
  Serious: Yes (Other)
  Sender: FDA-Public Use
  Company Number: US-ROCHE-2651402

PATIENT
  Sex: Female

DRUGS (4)
  1. LUCENTIS [Suspect]
     Active Substance: RANIBIZUMAB
     Indication: Neovascular age-related macular degeneration
     Dosage: ONGOING:YES, 1 SHOT IN RIGHT EYE EVERY 6 WEEKS; 1 SHOT IN LEFT EYE EVERY 12 WEEKS AS NEEDED
     Route: 050
     Dates: start: 2021, end: 20220609
  2. LUCENTIS [Suspect]
     Active Substance: RANIBIZUMAB
     Indication: Neovascular age-related macular degeneration
  3. LUCENTIS [Suspect]
     Active Substance: RANIBIZUMAB
     Indication: Choroidal neovascularisation
  4. BREO ELLIPTA [Concomitant]
     Active Substance: FLUTICASONE FUROATE\VILANTEROL TRIFENATATE
     Indication: Asthma
     Route: 055

REACTIONS (8)
  - Eye haemorrhage [Unknown]
  - Deafness [Unknown]
  - Eye disorder [Unknown]
  - COVID-19 [Unknown]
  - Vision blurred [Not Recovered/Not Resolved]
  - Ill-defined disorder [Unknown]
  - Off label use [Unknown]
  - Rash [Unknown]
